FAERS Safety Report 25634497 (Version 1)
Quarter: 2025Q3

REPORT INFORMATION
  Report Type: Spontaneous
  Country: US (occurrence: US)
  Receive Date: 20250801
  Receipt Date: 20250801
  Transmission Date: 20251021
  Serious: Yes (Other)
  Sender: AMGEN
  Company Number: US-AMGEN-USASP2025149288

PATIENT
  Age: 60 Year
  Sex: Male

DRUGS (4)
  1. TALIMOGENE LAHERPAREPVEC [Suspect]
     Active Substance: TALIMOGENE LAHERPAREPVEC
     Indication: Metastatic malignant melanoma
     Dosage: UNK UNK, Q2WK
     Route: 065
     Dates: start: 20210128
  2. PEMBROLIZUMAB [Suspect]
     Active Substance: PEMBROLIZUMAB
     Indication: Metastatic malignant melanoma
     Route: 065
  3. NELVUTAMIG [Concomitant]
     Active Substance: NELVUTAMIG
     Dates: start: 20210120
  4. NIVOLUMAB [Concomitant]
     Active Substance: NIVOLUMAB
     Dates: start: 20210120

REACTIONS (2)
  - Metastases to lymph nodes [Unknown]
  - Vitiligo [Unknown]
